FAERS Safety Report 4544785-2 (Version None)
Quarter: 2005Q1

REPORT INFORMATION
  Report Type: 
  Country: None (occurrence: None)
  Receive Date: 20050105
  Receipt Date: 20040709
  Transmission Date: 20050727
  Serious: Yes (Hospitalization)
  Sender: FDA-Public Use
  Company Number: US-ROCHE-374143

PATIENT
  Age: 18 Year
  Sex: Male
  Weight: 49.9 kg

DRUGS (1)
  1. FUZEON [Suspect]
     Indication: HIV INFECTION
     Dosage: ROUTE REPORTED AS: INJECTION.
     Route: 050
     Dates: start: 20040423

REACTIONS (10)
  - BLOOD GLUCOSE ABNORMAL [None]
  - BLOOD GLUCOSE INCREASED [None]
  - CD4 LYMPHOCYTES INCREASED [None]
  - DIZZINESS [None]
  - HERPES ZOSTER [None]
  - HYPOTENSION [None]
  - INJECTION SITE NODULE [None]
  - INJECTION SITE PRURITUS [None]
  - PAIN [None]
  - TREATMENT NONCOMPLIANCE [None]
